FAERS Safety Report 17536845 (Version 4)
Quarter: 2025Q1

REPORT INFORMATION
  Report Type: Spontaneous
  Country: DE (occurrence: DE)
  Receive Date: 20200313
  Receipt Date: 20250304
  Transmission Date: 20250408
  Serious: Yes (Congenital Anomaly, Other)
  Sender: NOVARTIS
  Company Number: None

PATIENT

DRUGS (1)
  1. VALSARTAN [Suspect]
     Active Substance: VALSARTAN
     Indication: Foetal exposure during pregnancy
     Route: 064

REACTIONS (6)
  - Muscle contracture [Recovering/Resolving]
  - Cranial sutures widening [Recovering/Resolving]
  - Foetal disorder [Recovering/Resolving]
  - Renal impairment neonatal [Unknown]
  - Congenital renal disorder [Recovering/Resolving]
  - Foetal exposure during pregnancy [Unknown]
